FAERS Safety Report 19477416 (Version 2)
Quarter: 2021Q3

REPORT INFORMATION
  Report Type: Spontaneous
  Country: US (occurrence: US)
  Receive Date: 20210630
  Receipt Date: 20210707
  Transmission Date: 20211014
  Serious: No
  Sender: FDA-Public Use
  Company Number: US-PFIZER INC-2021397366

PATIENT
  Age: 60 Year
  Sex: Female
  Weight: 63.49 kg

DRUGS (5)
  1. LETROZOLE. [Concomitant]
     Active Substance: LETROZOLE
  2. CYCLOBENZAPRINE. [Concomitant]
     Active Substance: CYCLOBENZAPRINE
  3. IBRANCE [Suspect]
     Active Substance: PALBOCICLIB
     Indication: BREAST CANCER FEMALE
     Dosage: 100 MG, 1X/DAY
     Route: 048
     Dates: start: 20210407
  4. COVID?19 VACCINE [Concomitant]
     Indication: COVID-19 IMMUNISATION
  5. DEXAMETHASONE. [Concomitant]
     Active Substance: DEXAMETHASONE

REACTIONS (6)
  - Fatigue [Unknown]
  - Dry mouth [Unknown]
  - Dyspnoea [Unknown]
  - Anxiety [Unknown]
  - Nervousness [Unknown]
  - Nasal congestion [Unknown]

NARRATIVE: CASE EVENT DATE: 202104
